FAERS Safety Report 9412417 (Version 4)
Quarter: 2019Q2

REPORT INFORMATION
  Report Type: Spontaneous
  Country: US (occurrence: US)
  Receive Date: 20130722
  Receipt Date: 20190618
  Transmission Date: 20190711
  Serious: Yes (Hospitalization, Other)
  Sender: FDA-Public Use
  Company Number: US-ELI_LILLY_AND_COMPANY-US201307004869

PATIENT
  Sex: Female

DRUGS (6)
  1. BUSPAR [Concomitant]
     Active Substance: BUSPIRONE HYDROCHLORIDE
  2. PROZAC [Suspect]
     Active Substance: FLUOXETINE HYDROCHLORIDE
     Indication: ANXIETY
     Dosage: 20 MG, QD
  3. PROZAC [Suspect]
     Active Substance: FLUOXETINE HYDROCHLORIDE
     Dosage: 20 UNK, UNKNOWN
     Route: 065
  4. PROZAC [Suspect]
     Active Substance: FLUOXETINE HYDROCHLORIDE
     Dosage: 30 MG, QD
     Dates: start: 20130705
  5. LISINOPRIL. [Concomitant]
     Active Substance: LISINOPRIL
     Indication: HYPERTENSION
  6. PROZAC [Suspect]
     Active Substance: FLUOXETINE HYDROCHLORIDE
     Indication: DEPRESSION
     Dosage: 10 MG, QD
     Dates: start: 1988

REACTIONS (36)
  - Connective tissue disorder [Unknown]
  - Fibromyalgia [Unknown]
  - Fear [Unknown]
  - Dizziness postural [Unknown]
  - Drug hypersensitivity [Unknown]
  - Insomnia [Not Recovered/Not Resolved]
  - Wrong technique in product usage process [Recovered/Resolved]
  - Adrenal disorder [Unknown]
  - Anger [Unknown]
  - Dizziness [Unknown]
  - Anxiety [Unknown]
  - Dyspnoea [Unknown]
  - Bursitis [Unknown]
  - Drug intolerance [Unknown]
  - Feeling abnormal [Unknown]
  - Nausea [Unknown]
  - Arthritis [Unknown]
  - Urinary tract infection [Unknown]
  - Abdominal discomfort [Unknown]
  - Flatulence [Unknown]
  - Thinking abnormal [Unknown]
  - Hypertension [Unknown]
  - Umbilical hernia [Unknown]
  - Headache [Unknown]
  - Appendicitis [Unknown]
  - Chest discomfort [Unknown]
  - Skin burning sensation [Unknown]
  - Abdominal distension [Unknown]
  - Abnormal faeces [Unknown]
  - Weight decreased [Unknown]
  - Agitation [Not Recovered/Not Resolved]
  - Musculoskeletal pain [Unknown]
  - Dependence [Unknown]
  - Panic attack [Unknown]
  - Nervousness [Unknown]
  - Rectal prolapse [Unknown]

NARRATIVE: CASE EVENT DATE: 201304
